FAERS Safety Report 25173139 (Version 1)
Quarter: 2025Q2

REPORT INFORMATION
  Report Type: Spontaneous
  Country: DE (occurrence: DE)
  Receive Date: 20250408
  Receipt Date: 20250408
  Transmission Date: 20250716
  Serious: Yes (Death)
  Sender: BRAEBURN PHARMACEUTICALS
  Company Number: DE-Camurus-CAM-2025-000362

PATIENT

DRUGS (2)
  1. BUPRENORPHINE [Suspect]
     Active Substance: BUPRENORPHINE
     Indication: Drug dependence
     Dosage: 16 MILLIGRAM, QW
     Route: 065
     Dates: start: 20191025
  2. BUPRENORPHINE [Suspect]
     Active Substance: BUPRENORPHINE
     Indication: Drug dependence
     Dosage: 96 MILLIGRAM, MONTHLY
     Route: 065
     Dates: start: 20191111

REACTIONS (1)
  - Hepatic cirrhosis [Fatal]
